FAERS Safety Report 6523014-4 (Version None)
Quarter: 2009Q4

REPORT INFORMATION
  Report Type: 
  Country: None (occurrence: None)
  Receive Date: 20091222
  Receipt Date: 20091204
  Transmission Date: 20100525
  Serious: Yes (Hospitalization)
  Sender: FDA-Public Use
  Company Number: 1-20910406

PATIENT
  Age: 73 Year
  Sex: Male
  Weight: 88.4514 kg

DRUGS (7)
  1. AMIODARONE HCL [Suspect]
     Indication: ATRIAL FIBRILLATION
     Dosage: 400 MG, TWICE DAILY THEN TAPER, ORAL
     Route: 048
     Dates: start: 20090921, end: 20091021
  2. WARFARIN SODIUM [Concomitant]
  3. POTASSIUM CHLORIDE [Concomitant]
  4. LASIX [Concomitant]
  5. COREG [Concomitant]
  6. AVAPRO [Concomitant]
  7. DILANTIN [Concomitant]

REACTIONS (6)
  - BREAST ENLARGEMENT [None]
  - BREAST TENDERNESS [None]
  - CHEST PAIN [None]
  - DYSPNOEA EXERTIONAL [None]
  - OCULAR HYPERAEMIA [None]
  - VISION BLURRED [None]
